FAERS Safety Report 6152897-5 (Version None)
Quarter: 2009Q2

REPORT INFORMATION
  Report Type: 
  Country: None (occurrence: None)
  Receive Date: 20090413
  Receipt Date: 20090408
  Transmission Date: 20091009
  Serious: Yes (Death, Hospitalization)
  Sender: FDA-Public Use
  Company Number: PHHY2009CN13391

PATIENT
  Sex: Male

DRUGS (1)
  1. VOLTAREN [Suspect]
     Indication: PAIN
     Dosage: 75 MG ONCE
     Route: 048

REACTIONS (4)
  - DISEASE PROGRESSION [None]
  - HAEMOLYSIS [None]
  - MULTI-ORGAN FAILURE [None]
  - SEPSIS [None]
